FAERS Safety Report 16010941 (Version 2)
Quarter: 2019Q1

REPORT INFORMATION
  Report Type: Spontaneous
  Country: US (occurrence: US)
  Receive Date: 20190227
  Receipt Date: 20190306
  Transmission Date: 20190418
  Serious: Yes (Other)
  Sender: FDA-Public Use
  Company Number: US-HBP-2019US018393

PATIENT
  Sex: Male

DRUGS (6)
  1. COUMADIN [Concomitant]
     Active Substance: WARFARIN SODIUM
  2. AMOXICILLIN. [Concomitant]
     Active Substance: AMOXICILLIN
  3. VALCHLOR [Suspect]
     Active Substance: MECHLORETHAMINE
     Indication: MYCOSIS FUNGOIDES
     Dosage: UNK, 1-2 TIMES A WEEK
     Route: 061
     Dates: start: 20140321
  4. COMPLETE MULTI VIT [Concomitant]
     Active Substance: VITAMINS
  5. LOPRESSOR [Concomitant]
     Active Substance: METOPROLOL TARTRATE
  6. COZAAR [Concomitant]
     Active Substance: LOSARTAN POTASSIUM

REACTIONS (5)
  - Third degree chemical burn of skin [Unknown]
  - Application site vesicles [Unknown]
  - Second degree chemical burn of skin [Unknown]
  - Skin weeping [Unknown]
  - Dermatitis contact [Unknown]
